FAERS Safety Report 4485126-9 (Version None)
Quarter: 2004Q4

REPORT INFORMATION
  Report Type: 
  Country: None (occurrence: None)
  Receive Date: 20041026
  Receipt Date: 20031104
  Transmission Date: 20050328
  Serious: No
  Sender: FDA-Public Use
  Company Number: US-BRISTOL-MYERS SQUIBB COMPANY-12425955

PATIENT
  Age: 71 Year
  Sex: Female
  Weight: 79 kg

DRUGS (5)
  1. GLUCOPHAGE XR [Suspect]
     Indication: DIABETES MELLITUS
     Route: 048
     Dates: start: 20031029
  2. SYNTHROID [Concomitant]
  3. HYDROCHLOROTHIAZIDE [Concomitant]
  4. ATENOLOL [Concomitant]
  5. LORAZEPAM [Concomitant]
     Indication: ANXIETY

REACTIONS (1)
  - NERVOUSNESS [None]
